FAERS Safety Report 8611805 (Version 3)
Quarter: 2013Q2

REPORT INFORMATION
  Report Type: Spontaneous
  Country: US (occurrence: US)
  Receive Date: 20120613
  Receipt Date: 20130531
  Transmission Date: 20140414
  Serious: No
  Sender: FDA-Public Use
  Company Number: US-ASTRAZENECA-2009SE28216

PATIENT
  Age: 66 Year
  Sex: Female
  Weight: 78.5 kg

DRUGS (24)
  1. SYMBICORT PMDI [Suspect]
     Indication: CHRONIC OBSTRUCTIVE PULMONARY DISEASE
     Dosage: 320 MCG, TWO TIMES A DAY
     Route: 055
     Dates: start: 20091013
  2. SYMBICORT PMDI [Suspect]
     Indication: CHRONIC OBSTRUCTIVE PULMONARY DISEASE
     Dosage: 160-4.5 MCG ,  TWO PUFFS BID
     Route: 055
     Dates: start: 20110616
  3. RHINOCORT AQUA [Suspect]
     Dosage: 32 MCG FOUR SPRAYS, EVERY DAY
     Route: 045
     Dates: start: 20111215
  4. LISINOPRIL [Suspect]
     Route: 065
  5. METOPROLOL [Suspect]
     Route: 048
     Dates: start: 20111122
  6. TOPROL [Suspect]
     Dosage: GENERIC
     Route: 065
  7. PULMICORT FLEXHALER [Concomitant]
  8. DILTIAZEM [Concomitant]
  9. COREG [Concomitant]
  10. ACIPHEX [Concomitant]
     Dates: start: 20110825
  11. LASIX [Concomitant]
     Dates: start: 20111206
  12. POTASSIUM [Concomitant]
  13. PROCARDIA XL [Concomitant]
     Dates: start: 20111206
  14. PROAIR HFA [Concomitant]
     Dosage: TWO INHALATIONS QID, PRN
     Route: 055
     Dates: start: 20111206
  15. ARISTOCORT [Concomitant]
     Dates: start: 20111206
  16. ATIVAN [Concomitant]
     Dates: start: 20111206
  17. COZAAR [Concomitant]
     Dates: start: 20110302
  18. MOBIC [Concomitant]
     Dosage: 7.5 MG, BID PRN
     Dates: start: 20110818
  19. NASACORT AQ [Concomitant]
     Dosage: 55 MCG TWO SPRAY QD
     Dates: start: 20110413
  20. ZANTAC [Concomitant]
     Dosage: PRN
     Dates: start: 20110526
  21. ZYRTEC [Concomitant]
     Dates: start: 20110125
  22. ULTRAM [Concomitant]
     Indication: PAIN
     Dosage: 1-2 TAB, QID PRN
     Dates: start: 20111206
  23. PAMELOR [Concomitant]
     Indication: SLEEP DISORDER
     Dates: start: 20111017
  24. PAMELOR [Concomitant]
     Indication: DIARRHOEA
     Dates: start: 20111017

REACTIONS (10)
  - Pain [Unknown]
  - Cough [Unknown]
  - Oropharyngeal pain [Unknown]
  - Oral candidiasis [Unknown]
  - Sleep disorder [Unknown]
  - Diarrhoea [Unknown]
  - Dyspnoea [Unknown]
  - Memory impairment [Unknown]
  - Drug hypersensitivity [Unknown]
  - Intentional drug misuse [Unknown]
